FAERS Safety Report 9707437 (Version 3)
Quarter: 2014Q1

REPORT INFORMATION
  Report Type: Spontaneous
  Country: FI (occurrence: FI)
  Receive Date: 20131125
  Receipt Date: 20140128
  Transmission Date: 20141002
  Serious: Yes (Life-Threatening, Hospitalization, Disabling, Other)
  Sender: FDA-Public Use
  Company Number: PHHY2013FI132355

PATIENT
  Age: 47 Year
  Sex: Female

DRUGS (3)
  1. GILENYA [Suspect]
     Indication: MULTIPLE SCLEROSIS
     Dosage: 0.5 MG, QD
     Route: 048
     Dates: start: 20130625, end: 201311
  2. TEVETEN [Concomitant]
     Indication: HYPERTENSION
     Dosage: 600 MG, UNK
  3. ANTIDEPRESSANTS [Concomitant]

REACTIONS (6)
  - Status epilepticus [Recovered/Resolved]
  - Loss of consciousness [Recovered/Resolved]
  - Brain oedema [Recovering/Resolving]
  - Memory impairment [Not Recovered/Not Resolved]
  - Herpes zoster meningoencephalitis [Recovered/Resolved]
  - Blood sodium decreased [Unknown]
